FAERS Safety Report 7911561-X (Version None)
Quarter: 2011Q4

REPORT INFORMATION
  Report Type: 
  Country: None (occurrence: None)
  Receive Date: 20111114
  Receipt Date: 20111110
  Transmission Date: 20120403
  Serious: No
  Sender: FDA-Public Use
  Company Number: US-B.I. PHARMACEUTICALS,INC./RIDGEFIELD-2011-BP-26003BP

PATIENT
  Sex: Female

DRUGS (8)
  1. ADVAIR DISKUS 100/50 [Concomitant]
     Indication: ASTHMA
  2. HYDROCODONE BITARTRATE [Concomitant]
     Indication: BACK PAIN
  3. NAPROSYN [Concomitant]
     Indication: MIGRAINE
  4. DIOVAN [Concomitant]
     Indication: HYPERTENSION
  5. AMBIEN [Concomitant]
     Indication: INSOMNIA
  6. SPIRIVA [Suspect]
     Indication: ASTHMA
     Dosage: 18 MCG
     Route: 055
     Dates: start: 20100101
  7. BUMETIDE [Concomitant]
     Indication: BACK PAIN
  8. DIAZEPAM [Concomitant]
     Indication: ANXIETY

REACTIONS (1)
  - DRUG INEFFECTIVE [None]
